FAERS Safety Report 24987208 (Version 1)
Quarter: 2025Q1

REPORT INFORMATION
  Report Type: Spontaneous
  Country: US (occurrence: None)
  Receive Date: 20250219
  Receipt Date: 20250219
  Transmission Date: 20250409
  Serious: Yes (Other)
  Sender: FDA-CTU
  Company Number: None

PATIENT
  Age: 72 Year
  Sex: Male
  Weight: 112.5 kg

DRUGS (6)
  1. WEGOVY [Suspect]
     Active Substance: SEMAGLUTIDE
     Indication: Weight decreased
     Dates: start: 20240514, end: 20240521
  2. INSULIN NOS [Concomitant]
     Active Substance: INSULIN NOS
  3. ELIQUIS [Concomitant]
     Active Substance: APIXABAN
  4. NITROGLYCERIN [Concomitant]
     Active Substance: NITROGLYCERIN
  5. METOPROLOL TARTRATE [Concomitant]
     Active Substance: METOPROLOL TARTRATE
  6. VITAMIN D [Concomitant]
     Active Substance: VITAMIN D NOS

REACTIONS (7)
  - Vomiting [None]
  - Diarrhoea [None]
  - Hepatic cirrhosis [None]
  - Pancreatitis [None]
  - Bile duct stone [None]
  - Nephrolithiasis [None]
  - Renal vein thrombosis [None]

NARRATIVE: CASE EVENT DATE: 20240514
